FAERS Safety Report 25442937 (Version 1)
Quarter: 2025Q2

REPORT INFORMATION
  Report Type: Spontaneous
  Country: US (occurrence: US)
  Receive Date: 20250617
  Receipt Date: 20250617
  Transmission Date: 20250716
  Serious: No
  Sender: CSL BEHRING
  Company Number: US-BEH-2025208946

PATIENT
  Sex: Female

DRUGS (2)
  1. PRIVIGEN [Suspect]
     Active Substance: HUMAN IMMUNOGLOBULIN G
     Indication: Polymyositis
     Dosage: 25 G, QOW(250 ML)
     Route: 042
     Dates: start: 202412
  2. PRIVIGEN [Suspect]
     Active Substance: HUMAN IMMUNOGLOBULIN G
     Dosage: 30 G, QOW(300 ML)
     Route: 042
     Dates: start: 202412

REACTIONS (6)
  - Illness [Unknown]
  - Infection [Unknown]
  - Micturition frequency decreased [Unknown]
  - Urinary incontinence [Unknown]
  - Chromaturia [Unknown]
  - Product use in unapproved indication [Unknown]
